FAERS Safety Report 6864520-2 (Version None)
Quarter: 2010Q3

REPORT INFORMATION
  Report Type: 
  Country: None (occurrence: None)
  Receive Date: 20100721
  Receipt Date: 20080401
  Transmission Date: 20110219
  Serious: No
  Sender: FDA-Public Use
  Company Number: US-PFIZER INC-2008028811

PATIENT
  Sex: Female
  Weight: 77.3 kg

DRUGS (5)
  1. CHANTIX [Suspect]
     Indication: SMOKING CESSATION THERAPY
     Dates: start: 20080301
  2. VERAPAMIL [Concomitant]
     Indication: HYPERTENSION
  3. TRIAMTEX [Concomitant]
     Indication: HYPERTENSION
  4. NEXIUM [Concomitant]
  5. OTHER RESPIRATORY SYSTEM PRODUCTS [Concomitant]
     Indication: DYSPNOEA

REACTIONS (2)
  - INFLUENZA LIKE ILLNESS [None]
  - MALAISE [None]
